FAERS Safety Report 20688603 (Version 3)
Quarter: 2022Q2

REPORT INFORMATION
  Report Type: Report from Study
  Country: US (occurrence: US)
  Receive Date: 20220408
  Receipt Date: 20220601
  Transmission Date: 20220720
  Serious: Yes (Other)
  Sender: FDA-Public Use
  Company Number: US-NOVARTISPH-NVSC2022US075926

PATIENT
  Age: 56 Year
  Sex: Male

DRUGS (4)
  1. ENTRESTO [Suspect]
     Active Substance: SACUBITRIL\VALSARTAN
     Indication: Atrial fibrillation
     Dosage: 100 MG (49/51 MG), BID
     Route: 065
     Dates: start: 202201
  2. FUROSEMIDE [Suspect]
     Active Substance: FUROSEMIDE
     Indication: Product used for unknown indication
     Dosage: UNK
     Route: 065
  3. VALSARTAN [Suspect]
     Active Substance: VALSARTAN
     Indication: Product used for unknown indication
     Dosage: UNK
     Route: 065
  4. LOSARTAN [Concomitant]
     Active Substance: LOSARTAN
     Indication: Product used for unknown indication
     Dosage: UNK
     Route: 065

REACTIONS (11)
  - Atrial fibrillation [Unknown]
  - Ejection fraction decreased [Recovering/Resolving]
  - Hypertension [Unknown]
  - Pollakiuria [Unknown]
  - Heart rate increased [Unknown]
  - Hypotension [Recovering/Resolving]
  - Dizziness [Recovering/Resolving]
  - Lethargy [Recovering/Resolving]
  - Product dose omission issue [Unknown]
  - Product use in unapproved indication [Unknown]
  - Wrong technique in product usage process [Unknown]

NARRATIVE: CASE EVENT DATE: 20211201
